FAERS Safety Report 8996682 (Version 1)
Quarter: 2012Q4

REPORT INFORMATION
  Report Type: Spontaneous
  Country: ES (occurrence: None)
  Receive Date: 20121220
  Receipt Date: 20121220
  Transmission Date: 20130627
  Serious: Yes (Other)
  Sender: FDA-Public Use
  Company Number: ES-ACCORD-015465

PATIENT
  Age: 47 Year
  Sex: Female
  Weight: 56 kg

DRUGS (3)
  1. PACLITAXEL (PACLITAXEL) [Suspect]
     Indication: BREAST CANCER
     Dosage: Intravenous (not otherwise specified)
     Route: 042
     Dates: start: 20121119, end: 20121119
  2. DEXCHLORPHENIRAMINE MALEATE (DEXCHLORPHENIRAMINE MALEATE) [Concomitant]
  3. RANITIDINE HYDROCHLORIDE (RANITIDINE HYDROCHLORIDE) [Concomitant]

REACTIONS (2)
  - Hypersensitivity [None]
  - Injection site pain [None]
